FAERS Safety Report 11547538 (Version 2)
Quarter: 2015Q4

REPORT INFORMATION
  Report Type: Spontaneous
  Country: JP (occurrence: JP)
  Receive Date: 20150924
  Receipt Date: 20151016
  Transmission Date: 20160304
  Serious: Yes (Death)
  Sender: FDA-Public Use
  Company Number: JP-DEP_12745_2015

PATIENT
  Age: 45 Year
  Sex: Female

DRUGS (1)
  1. TAPENTA (TAPENTADOL) [Suspect]
     Active Substance: TAPENTADOL HYDROCHLORIDE
     Indication: CANCER PAIN
     Dosage: DF
     Route: 048
     Dates: start: 20150910, end: 20150911

REACTIONS (1)
  - Malignant neoplasm progression [Fatal]
